FAERS Safety Report 21404899 (Version 2)
Quarter: 2022Q4

REPORT INFORMATION
  Report Type: Report from Study
  Country: CA (occurrence: CA)
  Receive Date: 20221003
  Receipt Date: 20221011
  Transmission Date: 20230112
  Serious: Yes (Death)
  Sender: FDA-Public Use
  Company Number: CA-BEH-2022150388

PATIENT
  Age: 39 Year
  Sex: Male
  Weight: 95 kg

DRUGS (23)
  1. HIZENTRA [Suspect]
     Active Substance: HUMAN IMMUNOGLOBULIN G
     Indication: Secondary immunodeficiency
     Dosage: 6 GRAM, QW
     Route: 065
     Dates: start: 20201103, end: 202206
  2. TACROLIMUS [Concomitant]
     Active Substance: TACROLIMUS
  3. CYCLOSPORINE [Concomitant]
     Active Substance: CYCLOSPORINE
  4. PREDNISONE [Concomitant]
     Active Substance: PREDNISONE
  5. CREATININE [CREATINE PHOSPHATE] [Concomitant]
  6. FLUCONAZOLE [Concomitant]
     Active Substance: FLUCONAZOLE
  7. BACTRIM [Concomitant]
     Active Substance: SULFAMETHOXAZOLE\TRIMETHOPRIM
  8. VALTREX [Concomitant]
     Active Substance: VALACYCLOVIR HYDROCHLORIDE
  9. NORVASC [Concomitant]
     Active Substance: AMLODIPINE BESYLATE
  10. TOPAMAX [Concomitant]
     Active Substance: TOPIRAMATE
  11. THIAMINE HYDROCHLORIDE [Concomitant]
     Active Substance: THIAMINE HYDROCHLORIDE
  12. FRAGMIN [Concomitant]
     Active Substance: DALTEPARIN SODIUM
  13. CALCIUM [Concomitant]
     Active Substance: CALCIUM
  14. ACTONEL [Concomitant]
     Active Substance: RISEDRONATE SODIUM
  15. VITAMIN D NOS [Concomitant]
     Active Substance: VITAMIN D NOS
  16. DICYCLOMINE [Concomitant]
     Active Substance: DICYCLOMINE HYDROCHLORIDE
  17. PANTOPRAZOLE SODIUM [Concomitant]
     Active Substance: PANTOPRAZOLE SODIUM
  18. RUXOLITINIB [Concomitant]
     Active Substance: RUXOLITINIB
  19. QUETIAPINE [Concomitant]
     Active Substance: QUETIAPINE
  20. CITALOPRAM [Concomitant]
     Active Substance: CITALOPRAM HYDROBROMIDE
  21. DILAUDID [Concomitant]
     Active Substance: HYDROMORPHONE HYDROCHLORIDE
  22. ATIVAN [Concomitant]
     Active Substance: LORAZEPAM
  23. CETIRIZINE HYDROCHLORIDE [Concomitant]
     Active Substance: CETIRIZINE HYDROCHLORIDE

REACTIONS (4)
  - Pulmonary embolism [Fatal]
  - Death [Fatal]
  - Loss of consciousness [Fatal]
  - Vital functions abnormal [Fatal]

NARRATIVE: CASE EVENT DATE: 20220620
